FAERS Safety Report 10384420 (Version 3)
Quarter: 2016Q3

REPORT INFORMATION
  Report Type: Report from Study
  Country: DE (occurrence: DE)
  Receive Date: 20140814
  Receipt Date: 20160928
  Transmission Date: 20161109
  Serious: Yes (Hospitalization)
  Sender: FDA-Public Use
  Company Number: DE-ROCHE-1446713

PATIENT
  Age: 45 Year
  Sex: Female
  Weight: 72 kg

DRUGS (18)
  1. TRASTUZUMAB [Suspect]
     Active Substance: TRASTUZUMAB
     Indication: BREAST CANCER METASTATIC
     Route: 042
     Dates: start: 20140331, end: 20140331
  2. TRASTUZUMAB [Suspect]
     Active Substance: TRASTUZUMAB
     Route: 042
     Dates: start: 20140721
  3. DOCETAXEL. [Suspect]
     Active Substance: DOCETAXEL
     Dosage: LAST DOSE: 16/NOV/2015
     Route: 042
     Dates: start: 20140422
  4. RAMIPRIL. [Concomitant]
     Active Substance: RAMIPRIL
     Indication: HYPERTENSION
     Route: 048
     Dates: start: 2011
  5. VENLAFAXINE [Concomitant]
     Active Substance: VENLAFAXINE HYDROCHLORIDE
     Indication: DEPRESSION
     Route: 048
     Dates: start: 2006
  6. QUETIAPINE. [Concomitant]
     Active Substance: QUETIAPINE
     Indication: DEPRESSION
     Route: 048
     Dates: start: 2006
  7. LONQUEX [Concomitant]
     Active Substance: LIPEGFILGRASTIM
     Indication: PROPHYLAXIS
     Dosage: DAY 2
     Route: 058
     Dates: start: 20140401, end: 20140722
  8. DEXAMETHASON [Concomitant]
     Active Substance: DEXAMETHASONE
     Indication: VOMITING
     Route: 048
     Dates: start: 20140330, end: 20140722
  9. KEVATRIL [Concomitant]
     Active Substance: GRANISETRON HYDROCHLORIDE
     Indication: VOMITING
     Route: 042
     Dates: start: 20140331, end: 20140721
  10. PERTUZUMAB [Suspect]
     Active Substance: PERTUZUMAB
     Dosage: LAST DOSE: 16/NOV/2015
     Route: 042
     Dates: start: 20140422
  11. TRASTUZUMAB [Suspect]
     Active Substance: TRASTUZUMAB
     Route: 042
     Dates: start: 20140422, end: 20140512
  12. TRASTUZUMAB [Suspect]
     Active Substance: TRASTUZUMAB
     Route: 042
     Dates: start: 20140630, end: 20140630
  13. BISOPROLOL [Concomitant]
     Active Substance: BISOPROLOL
     Indication: HYPERTENSION
     Route: 048
     Dates: start: 2011, end: 20140611
  14. BISOPROLOL [Concomitant]
     Active Substance: BISOPROLOL
     Indication: TACHYCARDIA
     Route: 065
     Dates: start: 20140612
  15. MCP [Concomitant]
     Active Substance: METOCLOPRAMIDE HYDROCHLORIDE
     Indication: VOMITING
     Route: 048
     Dates: start: 20140401, end: 20140722
  16. PERTUZUMAB [Suspect]
     Active Substance: PERTUZUMAB
     Indication: BREAST CANCER METASTATIC
     Route: 042
     Dates: start: 20140331, end: 20140331
  17. TRASTUZUMAB [Suspect]
     Active Substance: TRASTUZUMAB
     Route: 042
     Dates: start: 20140604, end: 20140604
  18. DOCETAXEL. [Suspect]
     Active Substance: DOCETAXEL
     Indication: BREAST CANCER METASTATIC
     Route: 042
     Dates: start: 20140331, end: 20140331

REACTIONS (8)
  - Nausea [Recovered/Resolved]
  - Tachycardia [Recovered/Resolved]
  - Vomiting [Recovered/Resolved]
  - Erysipelas [Recovered/Resolved]
  - General physical health deterioration [Recovering/Resolving]
  - Mucosal inflammation [Recovered/Resolved]
  - Dizziness [Recovered/Resolved]
  - Neuropathy peripheral [Recovering/Resolving]

NARRATIVE: CASE EVENT DATE: 20140403
